FAERS Safety Report 18264394 (Version 2)
Quarter: 2020Q4

REPORT INFORMATION
  Report Type: Spontaneous
  Country: US (occurrence: US)
  Receive Date: 20200914
  Receipt Date: 20201001
  Transmission Date: 20210113
  Serious: Yes (Other)
  Sender: FDA-Public Use
  Company Number: US-ROCHE-2663999

PATIENT
  Age: 58 Year
  Sex: Female
  Weight: 129.39 kg

DRUGS (10)
  1. XOLAIR [Suspect]
     Active Substance: OMALIZUMAB
  2. XOLAIR [Suspect]
     Active Substance: OMALIZUMAB
     Route: 058
     Dates: start: 202005
  3. BETAPACE [Concomitant]
     Active Substance: SOTALOL HYDROCHLORIDE
     Indication: ARRHYTHMIA
     Dates: start: 2018
  4. XOLAIR [Suspect]
     Active Substance: OMALIZUMAB
     Indication: IDIOPATHIC URTICARIA
     Route: 058
     Dates: start: 2019, end: 202005
  5. XOLAIR [Suspect]
     Active Substance: OMALIZUMAB
  6. PREDNISONE. [Concomitant]
     Active Substance: PREDNISONE
     Indication: URTICARIA
  7. XOLAIR [Suspect]
     Active Substance: OMALIZUMAB
  8. ZYRTEC (UNITED STATES) [Concomitant]
     Indication: URTICARIA
     Dates: start: 201904
  9. XOLAIR [Suspect]
     Active Substance: OMALIZUMAB
     Indication: ASTHMA
     Dosage: 150 MG/ML
     Route: 058
     Dates: start: 20191215
  10. PREDNISONE. [Concomitant]
     Active Substance: PREDNISONE
     Indication: ANAPHYLACTIC REACTION

REACTIONS (8)
  - Off label use [Unknown]
  - Intentional product misuse [Unknown]
  - Humerus fracture [Unknown]
  - Pharyngeal hypoaesthesia [Recovered/Resolved]
  - Urticaria [Unknown]
  - Fall [Recovered/Resolved]
  - Blood alkaline phosphatase increased [Unknown]
  - Aspartate aminotransferase increased [Unknown]

NARRATIVE: CASE EVENT DATE: 20200407
